FAERS Safety Report 7849239-3 (Version None)
Quarter: 2011Q4

REPORT INFORMATION
  Report Type: 
  Country: None (occurrence: None)
  Receive Date: 20111021
  Receipt Date: 20111014
  Transmission Date: 20120403
  Serious: Yes (Other)
  Sender: FDA-Public Use
  Company Number: AUR-APL-2011-05281

PATIENT
  Age: 81 Year
  Sex: Female
  Weight: 58.9676 kg

DRUGS (2)
  1. ALENDRONATE SODIUM [Suspect]
     Indication: BONE DENSITY DECREASED
     Dosage: 10 MG (70 MG, 1 IN 1 WK), ORAL
     Route: 048
     Dates: start: 20100101
  2. FOSAMAX [Concomitant]

REACTIONS (1)
  - NO THERAPEUTIC RESPONSE [None]
